FAERS Safety Report 8082222 (Version 3)
Quarter: 2018Q3

REPORT INFORMATION
  Report Type: Spontaneous
  Country: FR (occurrence: FR)
  Receive Date: 20110809
  Receipt Date: 20180907
  Transmission Date: 20181010
  Serious: Yes (Other)
  Sender: FDA-Public Use
  Company Number: FR-PFIZER INC-2011179332

PATIENT
  Age: 37 Year
  Sex: Male

DRUGS (1)
  1. CHAMPIX [Suspect]
     Active Substance: VARENICLINE TARTRATE
     Indication: SMOKING CESSATION THERAPY
     Dosage: 1 MG, 2X/DAY
     Route: 048
     Dates: start: 20110607, end: 20110709

REACTIONS (8)
  - Vomiting [Recovered/Resolved]
  - Insomnia [Unknown]
  - Hallucinations, mixed [Recovered/Resolved]
  - Post-traumatic stress disorder [Unknown]
  - Nightmare [Recovered/Resolved]
  - Suicide attempt [Recovered/Resolved with Sequelae]
  - Nausea [Recovered/Resolved]
  - Neurosis [Not Recovered/Not Resolved]

NARRATIVE: CASE EVENT DATE: 2011
